FAERS Safety Report 4300336-9 (Version None)
Quarter: 2004Q1

REPORT INFORMATION
  Report Type: 
  Country: None (occurrence: None)
  Receive Date: 20040218
  Receipt Date: 20040204
  Transmission Date: 20041129
  Serious: Yes (Hospitalization)
  Sender: FDA-Public Use
  Company Number: 2004009393

PATIENT
  Age: 66 Year
  Sex: Female

DRUGS (6)
  1. ZOLOFT [Suspect]
     Indication: DEPRESSION
     Dosage: 100 MG DAILY ORAL
     Route: 048
     Dates: start: 20030401, end: 20030922
  2. OLANZAPINE [Suspect]
     Indication: DEPRESSION
     Dosage: 5 MG ORAL
     Route: 048
     Dates: start: 20030401, end: 20030916
  3. MADOPAR (LEVODOPA, BENSERAZIDE HYDROCHLORIDE) [Concomitant]
  4. ZOLPIDEM TARTRATE [Concomitant]
  5. OMEPRAZOLE MAGNESIUM [Concomitant]
  6. SORBINIL [Concomitant]

REACTIONS (7)
  - ASPARTATE AMINOTRANSFERASE INCREASED [None]
  - BLOOD CREATINE PHOSPHOKINASE INCREASED [None]
  - BLOOD CREATINE PHOSPHOKINASE MB INCREASED [None]
  - FALL [None]
  - GENERAL PHYSICAL HEALTH DETERIORATION [None]
  - INJURY [None]
  - RHABDOMYOLYSIS [None]
